FAERS Safety Report 16078559 (Version 13)
Quarter: 2021Q3

REPORT INFORMATION
  Report Type: Spontaneous
  Country: GB (occurrence: GB)
  Receive Date: 20190315
  Receipt Date: 20210909
  Transmission Date: 20211014
  Serious: Yes (Hospitalization, Other)
  Sender: FDA-Public Use
  Company Number: GB-PFIZER INC-2018522097

PATIENT
  Age: 72 Year
  Sex: Female
  Weight: 66.4 kg

DRUGS (89)
  1. VINCRISTINE SULFATE. [Suspect]
     Active Substance: VINCRISTINE SULFATE
     Dosage: 2 MG/M2
     Dates: start: 20181114
  2. PREDNISONE. [Suspect]
     Active Substance: PREDNISONE
     Dosage: 50 MG
     Dates: start: 20190211
  3. PREDNISONE. [Suspect]
     Active Substance: PREDNISONE
     Dosage: 100 MG/KG
     Route: 042
  4. ALLOPURINOL. [Concomitant]
     Active Substance: ALLOPURINOL
     Dosage: UNK
     Dates: start: 20181121
  5. RANITIDINE. [Concomitant]
     Active Substance: RANITIDINE
     Indication: GASTROINTESTINAL DISORDER PROPHYLAXIS
     Dosage: 300 MG, 1X/DAY
     Dates: start: 20181025
  6. METFORMIN [Concomitant]
     Active Substance: METFORMIN HYDROCHLORIDE
     Dosage: UNK
     Dates: start: 2000
  7. LOSARTAN. [Concomitant]
     Active Substance: LOSARTAN
     Dosage: UNK
     Dates: start: 2000, end: 20181101
  8. FILGRASTIM [Concomitant]
     Active Substance: FILGRASTIM
     Indication: NEUTROPENIA
     Dosage: UNK
     Dates: start: 20181123, end: 20181127
  9. PREDNISOLONE. [Concomitant]
     Active Substance: PREDNISOLONE
     Dosage: 80 MG
     Dates: start: 20181114, end: 20181118
  10. MAGNESIUM [Concomitant]
     Active Substance: MAGNESIUM
     Indication: BLOOD MAGNESIUM DECREASED
  11. ZANAMIVIR [Concomitant]
     Active Substance: ZANAMIVIR
     Indication: INFLUENZA
     Dosage: UNK
     Dates: start: 20181207, end: 20181220
  12. BACTRIM [Concomitant]
     Active Substance: SULFAMETHOXAZOLE\TRIMETHOPRIM
     Indication: CANDIDA INFECTION
     Dosage: UNK
  13. GLOFITAMAB. [Suspect]
     Active Substance: GLOFITAMAB
     Dosage: 0.07 MG, EVERY 3 WEEKS
     Route: 042
     Dates: start: 20181121
  14. PARACETAMOL [Concomitant]
     Active Substance: ACETAMINOPHEN
     Dosage: 1 G, AS NEEDED
     Route: 065
     Dates: start: 20181123
  15. METFORMIN [Concomitant]
     Active Substance: METFORMIN HYDROCHLORIDE
     Dosage: UNK
     Dates: start: 1999
  16. AMLODIPINE [Concomitant]
     Active Substance: AMLODIPINE BESYLATE
     Dosage: UNK
     Dates: start: 2000, end: 20181108
  17. GLICLAZIDE [Concomitant]
     Active Substance: GLICLAZIDE
     Dosage: UNK
  18. SIMVASTATIN. [Concomitant]
     Active Substance: SIMVASTATIN
     Dosage: 20 MG, 1X/DAY
  19. FILGRASTIM [Concomitant]
     Active Substance: FILGRASTIM
     Dosage: UNK
     Dates: start: 20181030, end: 20181128
  20. CASSIA SENNA [Concomitant]
     Active Substance: HERBALS\SENNOSIDES
     Indication: CONSTIPATION
     Dosage: UNK
     Dates: start: 20181101
  21. FOLIC ACID. [Concomitant]
     Active Substance: FOLIC ACID
     Indication: BLOOD FOLATE DECREASED
  22. ACTONEL [Concomitant]
     Active Substance: RISEDRONATE SODIUM
     Indication: OSTEOPOROSIS PROPHYLAXIS
     Dosage: UNK
     Dates: start: 20190328
  23. RED BLOOD CELLS [Concomitant]
     Active Substance: HUMAN RED BLOOD CELL
     Indication: ANAEMIA
     Dosage: UNK
     Dates: start: 20190212, end: 20190212
  24. VINCRISTINE SULFATE. [Suspect]
     Active Substance: VINCRISTINE SULFATE
     Indication: DIFFUSE LARGE B-CELL LYMPHOMA
     Dosage: 2 MG/M2, CYCLIC ONCE EVERY 3 WKS
     Route: 042
     Dates: start: 20181025
  25. VINCRISTINE SULFATE. [Suspect]
     Active Substance: VINCRISTINE SULFATE
     Dosage: 2 MG/M2 ONCE IN 3 WEEKS
     Dates: start: 20181025
  26. DOXORUBICIN HCL [Suspect]
     Active Substance: DOXORUBICIN HYDROCHLORIDE
     Dosage: 90MG/M2 ONCE IN 3 WEEKS
     Dates: start: 20181025
  27. CYCLOPHOSPHAMIDE. [Suspect]
     Active Substance: CYCLOPHOSPHAMIDE
     Dosage: 1260 MG/M2, CYCLIC ONCE EVERY 3 WKS
     Dates: start: 20181114
  28. PREDNISONE. [Suspect]
     Active Substance: PREDNISONE
     Indication: DIFFUSE LARGE B-CELL LYMPHOMA
     Dosage: PREDNISONE ON DAY 1 MAY BE ADMINISTERED IV; REMAINING DOSES ON DAYS 2?5 TO BE ADMINISTERED ORALLY
     Route: 042
  29. OBINUTUZUMAB. [Suspect]
     Active Substance: OBINUTUZUMAB
     Dosage: UNK
     Dates: start: 20181114, end: 20181119
  30. PREDNISOLONE/PREDNISOLONE STEAGLATE [Suspect]
     Active Substance: PREDNISOLONE\PREDNISOLONE STEAGLATE
     Dosage: DATE OF MOST RECENT DOSE (50 MG) OF PREDNISOLONE PRIOR TO AE ONSET: 21/JAN/2019
     Route: 048
     Dates: start: 20190121
  31. PARACETAMOL [Concomitant]
     Active Substance: ACETAMINOPHEN
     Dosage: UNK, AS NEEDED
     Dates: start: 20190125
  32. METFORMIN [Concomitant]
     Active Substance: METFORMIN HYDROCHLORIDE
     Dosage: 500 MG, 3X/DAY
  33. METFORMIN [Concomitant]
     Active Substance: METFORMIN HYDROCHLORIDE
     Dosage: UNK
  34. METFORMIN [Concomitant]
     Active Substance: METFORMIN HYDROCHLORIDE
     Dosage: 1500 MG
     Dates: start: 1999
  35. ONDANSETRON [Concomitant]
     Active Substance: ONDANSETRON
     Indication: NAUSEA
     Dosage: UNK
     Dates: start: 20181025
  36. INSULIN ISOPHANE BW [Concomitant]
     Indication: HYPERGLYCAEMIA
     Dosage: UNK
     Dates: start: 20181125, end: 20181128
  37. VINCRISTINE SULFATE. [Suspect]
     Active Substance: VINCRISTINE SULFATE
     Dosage: UNK
     Dates: start: 20190207, end: 20190207
  38. DOXORUBICIN HCL [Suspect]
     Active Substance: DOXORUBICIN HYDROCHLORIDE
     Indication: DIFFUSE LARGE B-CELL LYMPHOMA
     Dosage: 90 MG/M2, CYCLIC ONCE EVERY 3 WKS
     Route: 042
     Dates: start: 20181025
  39. DOXORUBICIN HCL [Suspect]
     Active Substance: DOXORUBICIN HYDROCHLORIDE
     Dosage: 90 MG/M2 ONCE EVERY 3 WEEKS
     Dates: start: 20181025
  40. DOXORUBICIN HCL [Suspect]
     Active Substance: DOXORUBICIN HYDROCHLORIDE
     Dosage: 90MG/M2 ONCE IN 3 WEEKS
     Dates: start: 20181025
  41. RITUXIMAB. [Suspect]
     Active Substance: RITUXIMAB
     Indication: DIFFUSE LARGE B-CELL LYMPHOMA
     Dosage: 660 MG/M2, CYCLIC ONCE EVERY 3 WK
     Route: 042
     Dates: start: 20181114
  42. RITUXIMAB. [Suspect]
     Active Substance: RITUXIMAB
     Dosage: 660 MG/M2 ONCE IN 3 WEEKS
     Dates: start: 20181114
  43. GLOFITAMAB. [Suspect]
     Active Substance: GLOFITAMAB
     Indication: DIFFUSE LARGE B-CELL LYMPHOMA
     Dosage: 0.07 MG, EVERY 3 WEEKS
     Route: 042
     Dates: start: 20181121
  44. LEVOTHYROXINE. [Concomitant]
     Active Substance: LEVOTHYROXINE
     Dosage: UNK
     Dates: start: 1999
  45. METFORMIN [Concomitant]
     Active Substance: METFORMIN HYDROCHLORIDE
     Indication: TYPE 2 DIABETES MELLITUS
     Dosage: 1500 MG, 1X/DAY
     Route: 065
  46. DOMPERIDONE [Concomitant]
     Active Substance: DOMPERIDONE
     Indication: PROPHYLAXIS OF NAUSEA AND VOMITING
     Dosage: UNK
     Dates: start: 20181025
  47. LOSARTAN. [Concomitant]
     Active Substance: LOSARTAN
     Indication: HYPERTENSION
     Dosage: 50 MG
  48. COTRIMOXAZOLE [Concomitant]
     Active Substance: SULFAMETHOXAZOLE\TRIMETHOPRIM
     Dosage: 960 MG, 3 TIMES A WK
     Dates: start: 20181025
  49. MAGNESIUM [Concomitant]
     Active Substance: MAGNESIUM
     Indication: BLOOD MAGNESIUM DECREASED
     Dosage: UNK
     Dates: start: 20181123, end: 20181123
  50. RENNIES [Concomitant]
     Indication: DYSPEPSIA
     Dosage: UNK
     Dates: start: 201810, end: 201901
  51. DOXORUBICIN HCL [Suspect]
     Active Substance: DOXORUBICIN HYDROCHLORIDE
     Dosage: 90 MG/M2
     Dates: start: 20190207, end: 20190207
  52. PREDNISONE. [Suspect]
     Active Substance: PREDNISONE
     Dosage: 100 MG/KG
     Route: 042
  53. GLOFITAMAB. [Suspect]
     Active Substance: GLOFITAMAB
     Dosage: 0.07 MG, EVERY 3 WEEKS
     Dates: start: 20181121
  54. LEVOTHYROXINE. [Concomitant]
     Active Substance: LEVOTHYROXINE
     Indication: HYPOTHYROIDISM
     Dosage: 100 UG, 1X/DAY
     Route: 065
  55. LEVOTHYROXINE. [Concomitant]
     Active Substance: LEVOTHYROXINE
     Dosage: 100 UG, 1X/DAY
     Dates: start: 2000
  56. AMLODIPINE [Concomitant]
     Active Substance: AMLODIPINE BESYLATE
     Dosage: UNK
  57. DOMPERIDONE [Concomitant]
     Active Substance: DOMPERIDONE
     Indication: PROPHYLAXIS OF NAUSEA AND VOMITING
     Dosage: UNK (10?30 MG)
     Dates: start: 20181114, end: 20181119
  58. HUMULIN L [Concomitant]
     Active Substance: INSULIN HUMAN
     Indication: HYPERGLYCAEMIA
     Dosage: UNK
     Dates: start: 20181029, end: 20181030
  59. CANESTEN [Concomitant]
     Active Substance: CLOTRIMAZOLE
     Indication: CANDIDA INFECTION
     Dosage: UNK
     Dates: start: 20181207, end: 20181220
  60. CHOLECALCIFEROL [Concomitant]
     Active Substance: CHOLECALCIFEROL
     Indication: OSTEOPENIA
     Dosage: UNK
     Dates: start: 20190617
  61. CYCLOPHOSPHAMIDE. [Suspect]
     Active Substance: CYCLOPHOSPHAMIDE
     Indication: DIFFUSE LARGE B-CELL LYMPHOMA
     Dosage: 1260 MG, CYCLIC ONCE EVERY 3 WKS
     Route: 042
     Dates: start: 20181025
  62. CYCLOPHOSPHAMIDE. [Suspect]
     Active Substance: CYCLOPHOSPHAMIDE
     Dosage: 1260 MG, CYCLIC ONCE EVERY 3 WKS
     Route: 042
     Dates: start: 20181025
  63. PREDNISOLONE/PREDNISOLONE STEAGLATE [Suspect]
     Active Substance: PREDNISOLONE\PREDNISOLONE STEAGLATE
     Indication: DIFFUSE LARGE B-CELL LYMPHOMA
     Dosage: 100 MG
     Route: 048
     Dates: start: 20181025
  64. AMLODIPINE [Concomitant]
     Active Substance: AMLODIPINE BESYLATE
     Indication: HYPERTENSION
     Dosage: 10 MG
  65. AMLODIPINE [Concomitant]
     Active Substance: AMLODIPINE BESYLATE
     Dosage: UNK
     Dates: start: 20190618
  66. GLICLAZIDE [Concomitant]
     Active Substance: GLICLAZIDE
     Dosage: UNK
     Dates: start: 2009
  67. LOSARTAN. [Concomitant]
     Active Substance: LOSARTAN
     Dosage: UNK
  68. CANESTEN [Concomitant]
     Active Substance: CLOTRIMAZOLE
     Indication: CANDIDA INFECTION
  69. RED BLOOD CELLS [Concomitant]
     Active Substance: HUMAN RED BLOOD CELL
     Dosage: UNK
     Dates: start: 20181125, end: 20181125
  70. DOXORUBICIN HCL [Suspect]
     Active Substance: DOXORUBICIN HYDROCHLORIDE
     Dosage: 90 MG/M2, CYCLIC ONCE EVERY 3 WKS
     Dates: start: 20181114
  71. ALLOPURINOL. [Concomitant]
     Active Substance: ALLOPURINOL
     Indication: TUMOUR LYSIS SYNDROME
     Dosage: 300 MG, 1X/DAY
     Route: 065
     Dates: start: 20181025, end: 201812
  72. RANITIDINE. [Concomitant]
     Active Substance: RANITIDINE
     Dosage: 150 MG, 2X/DAY
  73. LEVOTHYROXINE. [Concomitant]
     Active Substance: LEVOTHYROXINE
     Dosage: 100 UG, 1X/DAY
     Route: 065
  74. GLICLAZIDE [Concomitant]
     Active Substance: GLICLAZIDE
     Indication: TYPE 2 DIABETES MELLITUS
     Dosage: 120 MG, 1X/DAY
     Route: 065
  75. GLICLAZIDE [Concomitant]
     Active Substance: GLICLAZIDE
     Dosage: 120 MG, 1X/DAY
     Route: 065
  76. ACICLOVIR [Concomitant]
     Active Substance: ACYCLOVIR
     Indication: PROPHYLAXIS
     Dosage: 200 MG, 3X/DAY
     Dates: start: 20181025
  77. CHLORPHENIRAMINE [CHLORPHENAMINE] [Concomitant]
     Active Substance: CHLORPHENIRAMINE
     Dosage: UNK
     Dates: start: 20181025
  78. FOLIC ACID. [Concomitant]
     Active Substance: FOLIC ACID
     Indication: BLOOD FOLATE DECREASED
     Dosage: UNK
     Dates: start: 20190404
  79. GRANULOCYTE COLONY STIMULATING FACTOR [Concomitant]
     Active Substance: GRANULOCYTE COLONY-STIMULATING FACTOR NOS
     Indication: NEUTROPENIA
     Dosage: UNK
     Dates: start: 20190404, end: 20190413
  80. DOXORUBICIN HCL [Suspect]
     Active Substance: DOXORUBICIN HYDROCHLORIDE
     Dosage: 90 MG/M2 ONCE EVERY 3 WEEKS
     Dates: start: 20181025
  81. CYCLOPHOSPHAMIDE. [Suspect]
     Active Substance: CYCLOPHOSPHAMIDE
     Dosage: 1260 MG/M2
     Dates: start: 20190207
  82. RITUXIMAB. [Suspect]
     Active Substance: RITUXIMAB
     Dosage: UNK
     Dates: start: 20190207, end: 20190207
  83. PREDNISONE. [Suspect]
     Active Substance: PREDNISONE
     Dosage: UNK
     Dates: start: 20181114, end: 20181118
  84. OBINUTUZUMAB. [Suspect]
     Active Substance: OBINUTUZUMAB
     Indication: DIFFUSE LARGE B-CELL LYMPHOMA
     Dosage: 1000 MG, SINGLE DOSE
     Route: 042
     Dates: start: 20181025
  85. PREDNISOLONE/PREDNISOLONE STEAGLATE [Suspect]
     Active Substance: PREDNISOLONE\PREDNISOLONE STEAGLATE
     Dosage: 80 MG
     Dates: start: 20181118
  86. GLOFITAMAB. [Suspect]
     Active Substance: GLOFITAMAB
     Dosage: 0.07 MG, EVERY 3 WEEKS
     Dates: start: 20181121
  87. PARACETAMOL [Concomitant]
     Active Substance: ACETAMINOPHEN
     Indication: PAIN
     Dosage: UNK
     Dates: start: 20181025
  88. ASPIRIN [ACETYLSALICYLIC ACID] [Concomitant]
     Active Substance: ASPIRIN
     Dosage: 75 MG, 1X/DAY
  89. COTRIMOXAZOLE [Concomitant]
     Active Substance: SULFAMETHOXAZOLE\TRIMETHOPRIM
     Dosage: UNK
     Dates: start: 20181207, end: 20181220

REACTIONS (2)
  - Oropharyngeal pain [Unknown]
  - Febrile neutropenia [Recovered/Resolved]

NARRATIVE: CASE EVENT DATE: 20181123
